FAERS Safety Report 9352017 (Version 2)
Quarter: 2013Q3

REPORT INFORMATION
  Report Type: Spontaneous
  Country: US (occurrence: US)
  Receive Date: 20130617
  Receipt Date: 20130716
  Transmission Date: 20140515
  Serious: No
  Sender: FDA-Public Use
  Company Number: US-BIOGENIDEC-2013BI053630

PATIENT
  Age: 32 Year
  Sex: Female

DRUGS (5)
  1. TYSABRI [Suspect]
     Indication: MULTIPLE SCLEROSIS
     Route: 042
     Dates: start: 20110627
  2. AVONEX [Concomitant]
     Indication: MULTIPLE SCLEROSIS
     Route: 030
     Dates: start: 20100702
  3. HYDROCORTIZONE [Concomitant]
     Indication: PREMEDICATION
  4. BENEDRYL [Concomitant]
     Indication: PREMEDICATION
  5. PEPCID [Concomitant]
     Indication: PREMEDICATION
     Route: 042

REACTIONS (8)
  - Allergy to animal [Recovered/Resolved with Sequelae]
  - White blood cell count increased [Not Recovered/Not Resolved]
  - Paraesthesia [Not Recovered/Not Resolved]
  - Foot fracture [Not Recovered/Not Resolved]
  - Hepatic enzyme increased [Recovered/Resolved]
  - Pruritus allergic [Recovered/Resolved with Sequelae]
  - Hypersensitivity [Recovered/Resolved with Sequelae]
  - Fatigue [Not Recovered/Not Resolved]
